FAERS Safety Report 13551056 (Version 3)
Quarter: 2017Q3

REPORT INFORMATION
  Report Type: Spontaneous
  Country: US (occurrence: US)
  Receive Date: 20170516
  Receipt Date: 20170823
  Transmission Date: 20171127
  Serious: No
  Sender: FDA-Public Use
  Company Number: US-PFIZER INC-2017203982

PATIENT
  Age: 48 Year
  Sex: Male

DRUGS (2)
  1. GENOTROPIN [Suspect]
     Active Substance: SOMATROPIN
     Indication: HYPOPITUITARISM
     Dosage: 0.6 MG, DAILY
     Route: 058
     Dates: start: 20170331
  2. GENOTROPIN [Suspect]
     Active Substance: SOMATROPIN
     Dosage: 0.3 MG, DAILY
     Route: 058

REACTIONS (10)
  - Pain in extremity [Unknown]
  - Dizziness [Unknown]
  - Injection site bruising [Unknown]
  - Musculoskeletal pain [Unknown]
  - Joint swelling [Unknown]
  - Pain in extremity [Recovering/Resolving]
  - Arthralgia [Unknown]
  - Fatigue [Unknown]
  - Influenza [Unknown]
  - Injection site pain [Unknown]

NARRATIVE: CASE EVENT DATE: 2017
